FAERS Safety Report 18346665 (Version 1)
Quarter: 2020Q4

REPORT INFORMATION
  Report Type: Spontaneous
  Country: CH (occurrence: CH)
  Receive Date: 20201005
  Receipt Date: 20201005
  Transmission Date: 20210114
  Serious: Yes (Hospitalization)
  Sender: FDA-Public Use
  Company Number: CH-PURDUE-USA-2020-0168819

PATIENT
  Age: 61 Year
  Sex: Male

DRUGS (10)
  1. NOVALGIN (METAMIZOLE SODIUM) [Suspect]
     Active Substance: METAMIZOLE SODIUM
     Indication: PAIN
     Dosage: 2 G, DAILY
     Route: 042
     Dates: start: 20200728, end: 20200730
  2. CO-AMOXI [Suspect]
     Active Substance: AMOXICILLIN\CLAVULANATE POTASSIUM
     Indication: PRODUCT USED FOR UNKNOWN INDICATION
     Dosage: UNK
     Route: 065
  3. OXYNORM [Suspect]
     Active Substance: OXYCODONE HYDROCHLORIDE
     Indication: PRODUCT USED FOR UNKNOWN INDICATION
     Dosage: UNK
     Route: 065
  4. BRUFEN                             /00109205/ [Concomitant]
     Active Substance: IBUPROFEN SODIUM
     Dosage: UNK
     Dates: start: 20200828
  5. NEXIUM MUPS                        /01479303/ [Concomitant]
     Dosage: UNK
     Dates: start: 20200828
  6. CLEXANE [Concomitant]
     Active Substance: ENOXAPARIN SODIUM
     Dosage: UNK
     Dates: start: 20200828
  7. CONCOR [Concomitant]
     Active Substance: BISOPROLOL FUMARATE
     Dosage: UNK
     Dates: start: 20200828
  8. MYDOCALM                           /00293002/ [Concomitant]
     Active Substance: TOLPERISONE HYDROCHLORIDE
     Dosage: UNK
     Dates: start: 20200828
  9. DAFALGAN [Suspect]
     Active Substance: ACETAMINOPHEN
     Indication: PRODUCT USED FOR UNKNOWN INDICATION
     Dosage: UNK
     Route: 065
  10. VIMOVO [Suspect]
     Active Substance: ESOMEPRAZOLE MAGNESIUM\NAPROXEN
     Indication: PRODUCT USED FOR UNKNOWN INDICATION
     Dosage: UNK
     Route: 065

REACTIONS (2)
  - Agranulocytosis [Recovering/Resolving]
  - Leukopenia [Recovering/Resolving]

NARRATIVE: CASE EVENT DATE: 20200728
